FAERS Safety Report 15740988 (Version 1)
Quarter: 2018Q4

REPORT INFORMATION
  Report Type: Spontaneous
  Country: GB (occurrence: GB)
  Receive Date: 20181219
  Receipt Date: 20181219
  Transmission Date: 20190205
  Serious: Yes (Disabling)
  Sender: FDA-Public Use
  Company Number: GB-SANIK-2018SA341252AA

PATIENT
  Age: 13 Year
  Sex: Male
  Weight: 60 kg

DRUGS (5)
  1. PARAFFIN [Concomitant]
     Active Substance: PARAFFIN
     Dosage: AS DIRECTED
     Dates: start: 20170721
  2. FEXOFENADINE HYDROCHLORIDE. [Suspect]
     Active Substance: FEXOFENADINE HYDROCHLORIDE
     Indication: RHINITIS ALLERGIC
     Dosage: 120 MG, QD
     Route: 048
     Dates: start: 20170721, end: 20181123
  3. VENTOLINE [SALBUTAMOL SULFATE] [Concomitant]
     Active Substance: ALBUTEROL SULFATE
     Dosage: PUFFS, AS NESSESORY
     Dates: start: 20170721
  4. CLENIL MODULITE [Concomitant]
     Active Substance: BECLOMETHASONE DIPROPIONATE
     Dosage: PUFF
     Dates: start: 20170721
  5. DOUBLEBASE [Concomitant]
     Active Substance: ISOPROPYL MYRISTATE\PARAFFIN
     Dosage: UNK UNK, PRN
     Dates: start: 20170721

REACTIONS (1)
  - Tic [Unknown]
